FAERS Safety Report 9393884 (Version 1)
Quarter: 2013Q3

REPORT INFORMATION
  Report Type: Spontaneous
  Country: CZ (occurrence: CZ)
  Receive Date: 20130710
  Receipt Date: 20130710
  Transmission Date: 20140515
  Serious: Yes (Other)
  Sender: FDA-Public Use
  Company Number: CZ-BAXTER-2013BAX025784

PATIENT
  Age: 40 Year
  Sex: Male

DRUGS (4)
  1. ENDOXAN 1G [Suspect]
     Indication: LANGERHANS^ CELL HISTIOCYTOSIS
     Route: 042
  2. CLADRIBINE [Suspect]
     Indication: LANGERHANS^ CELL HISTIOCYTOSIS
     Route: 042
  3. DEXAMETHASONE [Suspect]
     Indication: LANGERHANS^ CELL HISTIOCYTOSIS
     Route: 048
  4. METHYLPREDNISOLONE [Suspect]
     Indication: LANGERHANS^ CELL HISTIOCYTOSIS
     Route: 042

REACTIONS (1)
  - Tonsillitis [Unknown]
